FAERS Safety Report 18104111 (Version 1)
Quarter: 2020Q3

REPORT INFORMATION
  Report Type: Spontaneous
  Country: US (occurrence: US)
  Receive Date: 20200801
  Receipt Date: 20200801
  Transmission Date: 20201103
  Serious: Yes (Life-Threatening)
  Sender: FDA-Public Use
  Company Number: None

PATIENT
  Age: 67 Year
  Sex: Female
  Weight: 137.7 kg

DRUGS (17)
  1. HIZENTRA [Concomitant]
     Active Substance: HUMAN IMMUNOGLOBULIN G
  2. SINGULAIR [Concomitant]
     Active Substance: MONTELUKAST SODIUM
  3. METANX [Concomitant]
     Active Substance: LEVOMEFOLATE CALCIUM\METHYLCOBALAMIN\PYRIDOXAL PHOSPHATE ANHYDROUS
  4. ALBUTEROL INHALER [Concomitant]
     Active Substance: ALBUTEROL
  5. LANTUS [Concomitant]
     Active Substance: INSULIN GLARGINE
  6. LOSARTAN. [Concomitant]
     Active Substance: LOSARTAN
  7. TRESIBA [Suspect]
     Active Substance: INSULIN DEGLUDEC
     Indication: TYPE 2 DIABETES MELLITUS
     Dosage: ?          QUANTITY:5 INJECTION(S);OTHER ROUTE:INJECTION INTO  SKIN IN ABDOMEN?
     Dates: start: 20200714, end: 20200714
  8. SYNTHROID [Concomitant]
     Active Substance: LEVOTHYROXINE SODIUM
  9. NOVOLOG [Concomitant]
     Active Substance: INSULIN ASPART
  10. LASIX [Concomitant]
     Active Substance: FUROSEMIDE
  11. CALCIUM [Concomitant]
     Active Substance: CALCIUM
  12. METFORMIN [Concomitant]
     Active Substance: METFORMIN HYDROCHLORIDE
  13. K?DUR [Concomitant]
     Active Substance: POTASSIUM CHLORIDE
  14. ALLEGRA [Concomitant]
     Active Substance: FEXOFENADINE HYDROCHLORIDE
  15. VALTREX [Concomitant]
     Active Substance: VALACYCLOVIR HYDROCHLORIDE
  16. VITAMIN D3 [Concomitant]
     Active Substance: CHOLECALCIFEROL
  17. MULTIVITAMIN [Concomitant]
     Active Substance: VITAMINS

REACTIONS (8)
  - Choking [None]
  - Hypersensitivity [None]
  - Feeling abnormal [None]
  - Dyspnoea [None]
  - Product substitution issue [None]
  - Speech disorder [None]
  - Dizziness [None]
  - Insurance issue [None]

NARRATIVE: CASE EVENT DATE: 20200714
